FAERS Safety Report 12287031 (Version 1)
Quarter: 2016Q2

REPORT INFORMATION
  Report Type: Report from Study
  Country: JP (occurrence: JP)
  Receive Date: 20160420
  Receipt Date: 20160420
  Transmission Date: 20160815
  Serious: No
  Sender: FDA-Public Use
  Company Number: JP-WARNER CHILCOTT, LLC-1050779

PATIENT
  Age: 75 Year
  Sex: Male

DRUGS (11)
  1. OMEPRAZOLE. [Concomitant]
     Active Substance: OMEPRAZOLE
  2. DIASTASE [Concomitant]
     Active Substance: DIASTASE
  3. CALONAL [Concomitant]
     Active Substance: ACETAMINOPHEN
  4. BIODIASTASE 1000 [Concomitant]
  5. LYRICA [Concomitant]
     Active Substance: PREGABALIN
  6. CELECOXIB. [Concomitant]
     Active Substance: CELECOXIB
  7. ACTONEL [Suspect]
     Active Substance: RISEDRONATE SODIUM
     Indication: OSTEOPOROSIS
     Route: 048
     Dates: start: 20130719, end: 20151213
  8. ONEALFA [Concomitant]
     Active Substance: ALFACALCIDOL
     Dates: end: 20151225
  9. ADSORBIN [Concomitant]
     Active Substance: ALUMINUM SILICATE
  10. BIOFERMIN [Concomitant]
     Active Substance: BACILLUS SUBTILIS\LACTOBACILLUS ACIDOPHILUS\STREPTOCOCCUS FAECAIS
  11. LEVOFLOXACIN HEMIHYDRATE [Concomitant]
     Active Substance: LEVOFLOXACIN

REACTIONS (1)
  - Osteonecrosis [Recovered/Resolved]

NARRATIVE: CASE EVENT DATE: 20151028
